FAERS Safety Report 5678407-4 (Version None)
Quarter: 2008Q1

REPORT INFORMATION
  Report Type: 
  Country: None (occurrence: None)
  Receive Date: 20080320
  Receipt Date: 20080310
  Transmission Date: 20080703
  Serious: Yes (Hospitalization)
  Sender: FDA-Public Use
  Company Number: 2008AL001496

PATIENT
  Age: 23 Year
  Sex: Male

DRUGS (9)
  1. FLUOXETINE [Suspect]
     Indication: AFFECTIVE DISORDER
     Dosage: 80 MG; QD; PO
     Route: 048
  2. METHADON HCL TAB [Concomitant]
  3. NICOTINE [Concomitant]
  4. LORAZEPAM [Concomitant]
  5. QUETIAPINE FUMARATE [Concomitant]
  6. VORICONAZOLE [Concomitant]
  7. CYTARABINE [Concomitant]
  8. LINEZOLID [Concomitant]
  9. LORAZEPAM [Concomitant]

REACTIONS (16)
  - ABDOMINAL PAIN [None]
  - ACUTE MYELOID LEUKAEMIA RECURRENT [None]
  - AFFECTIVE DISORDER [None]
  - ANXIETY [None]
  - ATTENTION DEFICIT/HYPERACTIVITY DISORDER [None]
  - BLOOD CULTURE POSITIVE [None]
  - DRUG INTERACTION [None]
  - DRUG WITHDRAWAL SYNDROME [None]
  - DYSPNOEA [None]
  - FEELING ABNORMAL [None]
  - GAIT DISTURBANCE [None]
  - INFUSION RELATED REACTION [None]
  - MICROCOCCUS INFECTION [None]
  - MUCOSAL INFLAMMATION [None]
  - SEROTONIN SYNDROME [None]
  - TREMOR [None]
